FAERS Safety Report 10920168 (Version 1)
Quarter: 2015Q1

REPORT INFORMATION
  Report Type: Spontaneous
  Country: CN (occurrence: CN)
  Receive Date: 20150317
  Receipt Date: 20150317
  Transmission Date: 20150721
  Serious: Yes (Hospitalization)
  Sender: FDA-Public Use
  Company Number: CN-CIPLA LTD.-2015CN02056

PATIENT

DRUGS (7)
  1. PREDNISONE. [Suspect]
     Active Substance: PREDNISONE
     Indication: LYMPHOMA
     Dosage: 60 MG/M2 ON DAYS 1-5, EVERY 21 DAYS FOR TWO CYCLES
  2. DEXAMETHASONE. [Suspect]
     Active Substance: DEXAMETHASONE
     Dosage: 15 MG/M2 ON DAYS 1-5, EVERY 21 DAYS FOR TWO CYCLES
  3. THALIDOMIDE [Suspect]
     Active Substance: THALIDOMIDE
     Indication: LYMPHOMA
     Dosage: 200 MG/M2 ON DAYS 1-21, EVERY 21 DAYS FOR TWO CYCLES
  4. PEGYLATED LIPOSOMAL DOXORUBICIN [Suspect]
     Active Substance: DOXORUBICIN
     Indication: LYMPHOMA
     Dosage: 20 MG/M2 ON DAY 1, EVERY 21 DAYS FOR TWO CYCLES
  5. CISPLATIN. [Suspect]
     Active Substance: CISPLATIN
     Indication: LYMPHOMA
     Dosage: 20 MG/M2 ON DAYS 1-4, EVERY 21 DAYS FOR TWO CYCLES
  6. PEGASPARGASE [Suspect]
     Active Substance: PEGASPARGASE
     Indication: LYMPHOMA
     Dosage: 2,500 IU/M2 ON DAY 1, EVERY 21 DAYS FOR TWO CYCLES
  7. GEMCITABINE [Suspect]
     Active Substance: GEMCITABINE\GEMCITABINE HYDROCHLORIDE
     Indication: LYMPHOMA
     Dosage: 800 MG/M2 ON DAYS 1 AND 8 EVERY 21 DAYS FOR TWO CYCLES

REACTIONS (13)
  - Guillain-Barre syndrome [None]
  - Respiratory failure [Recovered/Resolved]
  - Bacterial infection [None]
  - Cough [Unknown]
  - Interstitial lung disease [None]
  - Productive cough [Unknown]
  - Fungal infection [None]
  - Effusion [None]
  - Paralysis [Unknown]
  - Skin mass [Recovered/Resolved]
  - Pulmonary congestion [Unknown]
  - Decreased appetite [Unknown]
  - Fatigue [Unknown]
